FAERS Safety Report 23167928 (Version 1)
Quarter: 2023Q4

REPORT INFORMATION
  Report Type: Spontaneous
  Country: US (occurrence: US)
  Receive Date: 20231109
  Receipt Date: 20231109
  Transmission Date: 20240110
  Serious: No
  Sender: FDA-Public Use
  Company Number: US-LUNDBECK-DKLU3068480

PATIENT
  Age: 39 Year
  Sex: Female

DRUGS (1)
  1. VYEPTI [Suspect]
     Active Substance: EPTINEZUMAB-JJMR
     Indication: New daily persistent headache
     Route: 041
     Dates: start: 20230914

REACTIONS (1)
  - Drug ineffective [Not Recovered/Not Resolved]
